FAERS Safety Report 6057374-8 (Version None)
Quarter: 2009Q1

REPORT INFORMATION
  Report Type: 
  Country: None (occurrence: None)
  Receive Date: 20090126
  Receipt Date: 20090107
  Transmission Date: 20090719
  Serious: Yes (Death)
  Sender: FDA-Public Use
  Company Number: B0553756A

PATIENT
  Age: 71 Year
  Sex: Male

DRUGS (7)
  1. ROSIGLITAZONE MALEATE [Suspect]
     Dosage: ORAL
     Route: 048
  2. BETA-BLOCKER (FORMULATION UNKNOWN0 (BETA-BLOCKER) [Suspect]
     Dosage: ORAL
     Route: 048
  3. QUININE (FORMULATION UNKNOWN) [Suspect]
     Dosage: ORAL
     Route: 048
  4. GLIBENCLAMIDE (FORMULATION UNKNOWN) (GLYBURIDE) [Suspect]
     Dosage: ORAL
     Route: 048
  5. MULTI-VITAMINS [Suspect]
     Dosage: ORAL
     Route: 048
  6. FUROSEMIDE [Suspect]
     Dosage: ORAL
     Route: 048
  7. HYDROCHLOROTHIAZIDE [Suspect]
     Dosage: ORAL

REACTIONS (1)
  - COMPLETED SUICIDE [None]
